FAERS Safety Report 8555445-5 (Version None)
Quarter: 2012Q3

REPORT INFORMATION
  Report Type: 
  Country: None (occurrence: None)
  Receive Date: 20120731
  Receipt Date: 20110825
  Transmission Date: 20120928
  Serious: Yes (Other)
  Sender: FDA-Public Use
  Company Number: US-ASTRAZENECA-2011SE12658

PATIENT

DRUGS (6)
  1. PAXIL CR [Concomitant]
     Dosage: 25-37.5 MG
     Dates: start: 20030923
  2. LAMICTAL [Concomitant]
     Dates: start: 20070807
  3. ABILIFY [Concomitant]
     Dosage: 10-30 MG
     Dates: start: 20030923
  4. TRIHEXYPHEN [Concomitant]
     Dates: start: 20030923
  5. SEROQUEL [Suspect]
     Route: 048
     Dates: start: 20030909
  6. ZONEGRAN [Concomitant]
     Dates: start: 20030902

REACTIONS (3)
  - PANCREATITIS [None]
  - DIABETIC COMA [None]
  - TYPE 2 DIABETES MELLITUS [None]
